FAERS Safety Report 5286641-0 (Version None)
Quarter: 2007Q2

REPORT INFORMATION
  Report Type: 
  Country: None (occurrence: None)
  Receive Date: 20070404
  Receipt Date: 20070326
  Transmission Date: 20071010
  Serious: Yes (Other)
  Sender: FDA-Public Use
  Company Number: GB-GLAXOSMITHKLINE-B0464524A

PATIENT
  Age: 54 Year
  Sex: Male

DRUGS (5)
  1. DIGOXIN [Suspect]
     Indication: ATRIAL FIBRILLATION
     Dosage: 250MCG PER DAY
     Route: 048
     Dates: start: 20061114
  2. ATORVASTATIN CALCIUM [Concomitant]
     Dosage: 40MG UNKNOWN
     Route: 048
     Dates: start: 20061128
  3. METOPROLOL SUCCINATE [Concomitant]
     Dosage: 100MG UNKNOWN
     Route: 048
     Dates: start: 20061128
  4. PERINDOPRIL ERBUMINE [Concomitant]
     Dosage: 4MG UNKNOWN
     Route: 048
     Dates: start: 20061128
  5. WARFARIN SODIUM [Concomitant]
     Indication: ATRIAL FIBRILLATION
     Route: 048

REACTIONS (1)
  - ERECTILE DYSFUNCTION [None]
